FAERS Safety Report 7563202-1 (Version None)
Quarter: 2011Q2

REPORT INFORMATION
  Report Type: 
  Country: None (occurrence: None)
  Receive Date: 20110622
  Receipt Date: 20110616
  Transmission Date: 20111010
  Serious: Yes (Hospitalization, Other)
  Sender: FDA-Public Use
  Company Number: US-ABBOTT-11P-163-0727049-00

PATIENT
  Sex: Male
  Weight: 102.6 kg

DRUGS (11)
  1. ENBREL [Suspect]
     Indication: PSORIASIS
  2. NORCO [Concomitant]
     Indication: PAIN
  3. METHOTREXATE [Suspect]
     Indication: PSORIASIS
     Dates: start: 20050101, end: 20060101
  4. HUMIRA [Suspect]
     Indication: PSORIASIS
     Route: 058
     Dates: start: 20091016, end: 20110421
  5. CLOBETASOL PROPIONATE [Concomitant]
     Indication: PRODUCT USED FOR UNKNOWN INDICATION
  6. VIAGRA [Concomitant]
     Indication: PRODUCT USED FOR UNKNOWN INDICATION
  7. FISH OIL [Concomitant]
     Indication: PRODUCT USED FOR UNKNOWN INDICATION
  8. RAPTIVA [Suspect]
     Indication: PSORIASIS
     Dates: start: 20060501, end: 20090601
  9. ALLOPURINOL [Concomitant]
     Indication: GOUT
  10. TACLONEX [Concomitant]
     Indication: PSORIASIS
  11. ASPIRIN [Concomitant]
     Indication: PRODUCT USED FOR UNKNOWN INDICATION

REACTIONS (5)
  - ABDOMINAL PAIN [None]
  - HYPERHIDROSIS [None]
  - BLOOD LACTATE DEHYDROGENASE INCREASED [None]
  - PANCREATIC NEOPLASM [None]
  - NON-HODGKIN'S LYMPHOMA [None]
